FAERS Safety Report 6126765-9 (Version None)
Quarter: 2009Q1

REPORT INFORMATION
  Report Type: 
  Country: None (occurrence: None)
  Receive Date: 20090320
  Receipt Date: 20090313
  Transmission Date: 20090719
  Serious: Yes (Other)
  Sender: FDA-Public Use
  Company Number: US-JNJFOC-20090303830

PATIENT
  Age: 33 Year
  Sex: Female
  Weight: 52.16 kg

DRUGS (2)
  1. SIMPLY SLEEP NIGHTTIME [Suspect]
     Route: 048
  2. SIMPLY SLEEP NIGHTTIME [Suspect]
     Indication: INSOMNIA
     Route: 048

REACTIONS (1)
  - DRUG DEPENDENCE [None]
